FAERS Safety Report 8922002 (Version 1)
Quarter: 2012Q4

REPORT INFORMATION
  Report Type: Spontaneous
  Country: US (occurrence: None)
  Receive Date: 20121120
  Receipt Date: 20121120
  Transmission Date: 20130627
  Serious: Yes (Hospitalization)
  Sender: FDA-Public Use
  Company Number: None

PATIENT
  Age: 81 Year
  Sex: Male
  Weight: 68.6 kg

DRUGS (1)
  1. TEMSIROLIMUS 25 MG/ML PFYZER [Suspect]
     Dosage: 25 mg weekly IV Drip
     Route: 041
     Dates: start: 20120707, end: 20120816

REACTIONS (4)
  - Melaena [None]
  - Epistaxis [None]
  - Haematuria [None]
  - Contusion [None]
